FAERS Safety Report 5057265-5 (Version None)
Quarter: 2006Q3

REPORT INFORMATION
  Report Type: 
  Country: None (occurrence: None)
  Receive Date: 20060721
  Receipt Date: 20050711
  Transmission Date: 20061208
  Serious: No
  Sender: FDA-Public Use
  Company Number: US-GLAXOSMITHKLINE-A0565767A

PATIENT
  Age: 75 Year
  Sex: Male

DRUGS (9)
  1. AVANDIA [Suspect]
     Dosage: 8MG PER DAY
     Route: 048
  2. VICODIN [Concomitant]
  3. SYNTHROID [Concomitant]
  4. PROTONIX [Concomitant]
  5. LISINOPRIL [Concomitant]
  6. DIGITEK [Concomitant]
  7. ROXICODONE [Concomitant]
  8. COSOPT [Concomitant]
  9. FLOMAX [Concomitant]

REACTIONS (1)
  - DRUG INEFFECTIVE [None]
